FAERS Safety Report 7505754-3 (Version None)
Quarter: 2011Q2

REPORT INFORMATION
  Report Type: 
  Country: None (occurrence: None)
  Receive Date: 20110526
  Receipt Date: 20110517
  Transmission Date: 20111010
  Serious: Yes (Other)
  Sender: FDA-Public Use
  Company Number: ES-ABBOTT-11P-144-0726511-00

PATIENT
  Age: 45 Year
  Sex: Female

DRUGS (1)
  1. HUMIRA [Suspect]
     Indication: PSORIASIS
     Route: 058
     Dates: start: 20100501, end: 20110314

REACTIONS (5)
  - AUTOIMMUNE DISORDER [None]
  - DRUG HYPERSENSITIVITY [None]
  - FATIGUE [None]
  - MENSTRUATION IRREGULAR [None]
  - LUPUS-LIKE SYNDROME [None]
